FAERS Safety Report 4972282-9 (Version None)
Quarter: 2006Q2

REPORT INFORMATION
  Report Type: 
  Country: None (occurrence: None)
  Receive Date: 20060413
  Receipt Date: 20060327
  Transmission Date: 20061013
  Serious: Yes (Disabling)
  Sender: FDA-Public Use
  Company Number: 2006UW05780

PATIENT
  Age: 39 Year
  Sex: Female

DRUGS (4)
  1. ZOMIG [Suspect]
     Indication: MIGRAINE
     Route: 048
  2. OXYCODONE [Concomitant]
     Route: 048
  3. BUSCOPAN [Concomitant]
     Route: 048
  4. CORGARD [Concomitant]
     Route: 048

REACTIONS (3)
  - DRUG DEPENDENCE [None]
  - DRUG INEFFECTIVE [None]
  - HEADACHE [None]
